FAERS Safety Report 9136272 (Version 1)
Quarter: 2013Q1

REPORT INFORMATION
  Report Type: Spontaneous
  Country: GB (occurrence: GB)
  Receive Date: 20130304
  Receipt Date: 20130304
  Transmission Date: 20140127
  Serious: Yes (Life-Threatening)
  Sender: FDA-Public Use
  Company Number: GB-GLAXOSMITHKLINE-B0871341A

PATIENT
  Age: 73 Year
  Sex: Female

DRUGS (6)
  1. ACITRETIN [Suspect]
     Indication: LICHEN PLANUS
     Dosage: 10MG PER DAY
     Route: 048
     Dates: start: 20121204, end: 20130210
  2. PRIADEL [Suspect]
     Indication: AFFECTIVE DISORDER
     Route: 048
     Dates: start: 20050101, end: 20130131
  3. NEXIUM [Concomitant]
     Dosage: 20MG PER DAY
  4. RAMIPRIL [Concomitant]
     Dosage: 2.5MG PER DAY
  5. METOCLOPRAMIDE [Concomitant]
     Dosage: 10MG THREE TIMES PER DAY
  6. LEVOTHYROXINE [Concomitant]
     Dosage: 50MCG PER DAY

REACTIONS (2)
  - Malaise [Unknown]
  - Antipsychotic drug level increased [Unknown]
